FAERS Safety Report 8153809-5 (Version None)
Quarter: 2012Q1

REPORT INFORMATION
  Report Type: 
  Country: None (occurrence: None)
  Receive Date: 20120221
  Receipt Date: 20120214
  Transmission Date: 20120608
  Serious: Yes (Other)
  Sender: FDA-Public Use
  Company Number: JP-GLAXOSMITHKLINE-B0782273A

PATIENT
  Age: 14 Year

DRUGS (1)
  1. RELENZA [Suspect]
     Indication: INFLUENZA
     Dosage: 4IUAX PER DAY
     Route: 055
     Dates: start: 20120207, end: 20120211

REACTIONS (3)
  - HALLUCINATION [None]
  - CORNEAL REFLEX DECREASED [None]
  - STARING [None]
